FAERS Safety Report 14795818 (Version 3)
Quarter: 2018Q4

REPORT INFORMATION
  Report Type: Report from Study
  Country: US (occurrence: US)
  Receive Date: 20180423
  Receipt Date: 20181017
  Transmission Date: 20190204
  Serious: No
  Sender: FDA-Public Use
  Company Number: US-AMGEN-USASL2018030423

PATIENT
  Age: 55 Year
  Sex: Female

DRUGS (2)
  1. REPATHA [Suspect]
     Active Substance: EVOLOCUMAB
     Indication: HYPERCHOLESTEROLAEMIA
     Dosage: 140 MG, Q2WK
     Route: 065
     Dates: start: 2017
  2. REPATHA [Suspect]
     Active Substance: EVOLOCUMAB
     Dosage: 140 MG, Q2WK
     Route: 065
     Dates: start: 20180302

REACTIONS (14)
  - Headache [Unknown]
  - Accidental exposure to product [Unknown]
  - Dizziness [Unknown]
  - Ear disorder [Unknown]
  - Fatigue [Recovered/Resolved]
  - Influenza [Unknown]
  - Blood pressure abnormal [Unknown]
  - Cough [Unknown]
  - Nasopharyngitis [Recovered/Resolved]
  - Wrong technique in product usage process [Unknown]
  - Vision blurred [Recovered/Resolved]
  - Sinus disorder [Unknown]
  - Oropharyngeal pain [Unknown]
  - Nervousness [Unknown]

NARRATIVE: CASE EVENT DATE: 2017
